FAERS Safety Report 6667628-X (Version None)
Quarter: 2010Q2

REPORT INFORMATION
  Report Type: 
  Country: None (occurrence: None)
  Receive Date: 20100405
  Receipt Date: 20100330
  Transmission Date: 20101027
  Serious: Yes (Congenital Anomaly)
  Sender: FDA-Public Use
  Company Number: A0679427A

PATIENT
  Sex: Male

DRUGS (3)
  1. PAXIL [Suspect]
     Dates: start: 20000601, end: 20010117
  2. EFFEXOR [Suspect]
  3. VITAMIN TAB [Concomitant]

REACTIONS (3)
  - CARDIAC DISORDER [None]
  - CONGENITAL ANOMALY [None]
  - DRUG EXPOSURE DURING PREGNANCY [None]
